FAERS Safety Report 11113602 (Version 1)
Quarter: 2015Q2

REPORT INFORMATION
  Report Type: Spontaneous
  Country: IT (occurrence: IT)
  Receive Date: 20150514
  Receipt Date: 20150514
  Transmission Date: 20150821
  Serious: Yes (Hospitalization)
  Sender: FDA-Public Use
  Company Number: IT-JNJFOC-20150505648

PATIENT
  Age: 73 Year
  Sex: Male

DRUGS (3)
  1. HALDOL [Suspect]
     Active Substance: HALOPERIDOL
     Indication: PRODUCT USED FOR UNKNOWN INDICATION
     Route: 048
     Dates: start: 20150407, end: 20150421
  2. NORMOTHEN [Concomitant]
     Active Substance: DOXAZOSIN MESYLATE
     Indication: PRODUCT USED FOR UNKNOWN INDICATION
     Route: 065
  3. LACIREX [Concomitant]
     Indication: PRODUCT USED FOR UNKNOWN INDICATION
     Route: 065

REACTIONS (3)
  - Cognitive disorder [Recovering/Resolving]
  - Extrapyramidal disorder [Recovering/Resolving]
  - Motor dysfunction [Recovering/Resolving]

NARRATIVE: CASE EVENT DATE: 20150413
